FAERS Safety Report 15860011 (Version 1)
Quarter: 2019Q1

REPORT INFORMATION
  Report Type: Spontaneous
  Country: FR (occurrence: FR)
  Receive Date: 20190123
  Receipt Date: 20190123
  Transmission Date: 20190417
  Serious: Yes (Hospitalization, Other)
  Sender: FDA-Public Use
  Company Number: FR-MYLANLABS-2019M1006028

PATIENT
  Age: 11 Year
  Sex: Female
  Weight: 37 kg

DRUGS (2)
  1. SOTALOL. [Interacting]
     Active Substance: SOTALOL
     Indication: TACHYCARDIA
     Dosage: 160 MILLIGRAM, QD
     Route: 048
     Dates: start: 20171215
  2. METHOTREXATE MYLAN [Suspect]
     Active Substance: METHOTREXATE SODIUM
     Indication: OSTEOSARCOMA
     Dosage: 15.4 GRAM, TOTAL
     Route: 042
     Dates: start: 20171214, end: 20171214

REACTIONS (3)
  - Drug level increased [Recovering/Resolving]
  - Drug interaction [Unknown]
  - Acute kidney injury [Recovering/Resolving]

NARRATIVE: CASE EVENT DATE: 20171217
